FAERS Safety Report 16351451 (Version 2)
Quarter: 2020Q1

REPORT INFORMATION
  Report Type: Report from Study
  Country: DE (occurrence: DE)
  Receive Date: 20190524
  Receipt Date: 20200121
  Transmission Date: 20200409
  Serious: Yes (Other)
  Sender: FDA-Public Use
  Company Number: DE-ROCHE-2320045

PATIENT
  Age: 54 Year
  Sex: Female
  Weight: 79 kg

DRUGS (8)
  1. PANTOZOL [Concomitant]
     Active Substance: PANTOPRAZOLE SODIUM
     Indication: PREMEDICATION
     Dosage: ONGOING
     Route: 048
     Dates: start: 20181010
  2. FAMPYRA [Concomitant]
     Active Substance: DALFAMPRIDINE
     Dosage: ONGOING
     Route: 048
     Dates: start: 201204
  3. PREDNISOLUT [PREDNISOLONE HEMISUCCINATE] [Concomitant]
     Indication: PREMEDICATION
     Dosage: ONGOING
     Route: 042
     Dates: start: 20181010
  4. BACLOFEN. [Concomitant]
     Active Substance: BACLOFEN
     Indication: MUSCLE SPASTICITY
     Route: 048
     Dates: start: 201102
  5. OCRELIZUMAB. [Suspect]
     Active Substance: OCRELIZUMAB
     Indication: MULTIPLE SCLEROSIS
     Route: 042
     Dates: start: 20181010, end: 20181024
  6. EMSELEX [DARIFENACIN] [Concomitant]
     Indication: BLADDER DISORDER
     Dosage: 1-0-1;ONGOING
     Route: 048
     Dates: start: 201204
  7. ELIQUIS [Concomitant]
     Active Substance: APIXABAN
     Indication: THROMBOSIS PROPHYLAXIS
     Dosage: ONGOING
     Route: 048
     Dates: start: 2015
  8. PARACETAMOL [Concomitant]
     Active Substance: ACETAMINOPHEN
     Indication: PREMEDICATION
     Dosage: ONGOING
     Route: 048
     Dates: start: 20181010

REACTIONS (1)
  - Altered state of consciousness [Recovered/Resolved]

NARRATIVE: CASE EVENT DATE: 20190208
